FAERS Safety Report 8110412-0 (Version None)
Quarter: 2012Q1

REPORT INFORMATION
  Report Type: 
  Country: None (occurrence: None)
  Receive Date: 20120202
  Receipt Date: 20120127
  Transmission Date: 20120608
  Serious: Yes (Hospitalization, Disabling, Other)
  Sender: FDA-Public Use
  Company Number: US-MERCK-1103USA02104

PATIENT
  Age: 54 Year
  Sex: Female
  Weight: 62 kg

DRUGS (10)
  1. FOSAMAX [Suspect]
     Indication: OSTEOPOROSIS
     Route: 048
     Dates: start: 20001020, end: 20071231
  2. FOSAMAX [Suspect]
     Route: 048
  3. ALLEGRA [Concomitant]
     Route: 065
     Dates: start: 20020101, end: 20090101
  4. ALENDRONATE SODIUM [Suspect]
     Indication: OSTEOPOROSIS
     Route: 048
     Dates: start: 20080308, end: 20100601
  5. OMEGA-3 MARINE TRIGLYCERIDES [Concomitant]
     Route: 048
  6. VITAMIN D (UNSPECIFIED) [Concomitant]
     Route: 065
  7. PREMPRO [Concomitant]
     Route: 065
  8. VENLAFAXINE HYDROCHLORIDE [Concomitant]
     Route: 065
  9. CALCIUM (UNSPECIFIED) [Concomitant]
     Route: 065
     Dates: start: 20001001, end: 20100101
  10. ROSUVASTATIN CALCIUM [Concomitant]
     Dosage: 5
     Route: 065

REACTIONS (59)
  - CEREBRAL INFARCTION [None]
  - FATIGUE [None]
  - OSTEOPENIA [None]
  - NEUROPATHY PERIPHERAL [None]
  - YELLOW SKIN [None]
  - VITAMIN D DEFICIENCY [None]
  - SCIATICA [None]
  - INTERVERTEBRAL DISC PROTRUSION [None]
  - OSTEOPOROSIS [None]
  - INTERVERTEBRAL DISC DEGENERATION [None]
  - UPPER RESPIRATORY TRACT INFECTION [None]
  - DEPRESSION [None]
  - FEMUR FRACTURE [None]
  - ADVERSE DRUG REACTION [None]
  - TENOSYNOVITIS STENOSANS [None]
  - OFF LABEL USE [None]
  - MUSCULAR WEAKNESS [None]
  - MOBILITY DECREASED [None]
  - TENDONITIS [None]
  - POOR QUALITY SLEEP [None]
  - PAIN IN EXTREMITY [None]
  - PAIN [None]
  - ARTHRALGIA [None]
  - MYOCARDIAL INFARCTION [None]
  - DYSPAREUNIA [None]
  - MYALGIA [None]
  - MEMORY IMPAIRMENT [None]
  - SCOLIOSIS [None]
  - RADICULAR PAIN [None]
  - PLAGUE [None]
  - DIZZINESS [None]
  - DYSLIPIDAEMIA [None]
  - ARTHRITIS [None]
  - FALL [None]
  - MITRAL VALVE STENOSIS [None]
  - GLUCOSE TOLERANCE IMPAIRED [None]
  - OSTEOARTHRITIS [None]
  - SYNCOPE [None]
  - GLYCOSYLATED HAEMOGLOBIN INCREASED [None]
  - CARDIAC VALVE DISEASE [None]
  - STRESS FRACTURE [None]
  - ANXIETY [None]
  - DRUG INTOLERANCE [None]
  - GAIT DISTURBANCE [None]
  - DRUG TOLERANCE [None]
  - MENOPAUSAL SYMPTOMS [None]
  - TRIGGER FINGER [None]
  - LUMBAR RADICULOPATHY [None]
  - HYPERTENSION [None]
  - HYPERLIPIDAEMIA [None]
  - CORONARY ARTERY DISEASE [None]
  - BLOOD GLUCOSE DECREASED [None]
  - CEREBROVASCULAR ACCIDENT [None]
  - DEVICE FAILURE [None]
  - LOW TURNOVER OSTEOPATHY [None]
  - ANAEMIA POSTOPERATIVE [None]
  - FIBROCYSTIC BREAST DISEASE [None]
  - IMPAIRED SELF-CARE [None]
  - HYPOGLYCAEMIA [None]
